FAERS Safety Report 8393211-4 (Version None)
Quarter: 2012Q2

REPORT INFORMATION
  Report Type: 
  Country: None (occurrence: None)
  Receive Date: 20120529
  Receipt Date: 20120515
  Transmission Date: 20120825
  Serious: No
  Sender: FDA-Public Use
  Company Number: US-ABBOTT-12P-163-0936177-00

PATIENT
  Sex: Male
  Weight: 149.82 kg

DRUGS (10)
  1. ANDROGEL [Suspect]
     Indication: BLOOD TESTOSTERONE DECREASED
     Dates: start: 20120401, end: 20120501
  2. WARFARIN SODIUM [Concomitant]
     Indication: THROMBOSIS PROPHYLAXIS
  3. LOVASTATIN [Concomitant]
     Indication: BLOOD CHOLESTEROL INCREASED
  4. FUROSEMIDE [Concomitant]
     Indication: FLUID RETENTION
  5. NOVOLIN 70/30 [Concomitant]
     Indication: DIABETES MELLITUS
  6. FISH OIL [Concomitant]
     Indication: SUPPLEMENTATION THERAPY
  7. LANTUS [Concomitant]
     Indication: DIABETES MELLITUS
  8. CARVEDILOL [Concomitant]
     Indication: HYPERTENSION
  9. QUINAPRIL [Concomitant]
     Indication: HYPERTENSION
  10. MAGNESIUM OXIDE [Concomitant]
     Indication: MINERAL SUPPLEMENTATION

REACTIONS (2)
  - OEDEMA PERIPHERAL [None]
  - JOINT SWELLING [None]
